FAERS Safety Report 19275858 (Version 2)
Quarter: 2021Q2

REPORT INFORMATION
  Report Type: Spontaneous
  Country: US (occurrence: US)
  Receive Date: 20210519
  Receipt Date: 20210625
  Transmission Date: 20210717
  Serious: Yes (Hospitalization, Other)
  Sender: FDA-Public Use
  Company Number: US-ALLERGAN-2119175US

PATIENT
  Sex: Female

DRUGS (1)
  1. TESTOSTERONE UNK [Suspect]
     Active Substance: TESTOSTERONE
     Indication: TRANSGENDER HORMONAL THERAPY
     Dosage: UNK
     Route: 065

REACTIONS (5)
  - Hostility [Unknown]
  - Aggression [Unknown]
  - Dissociative identity disorder [Unknown]
  - Condition aggravated [Unknown]
  - Off label use [Unknown]
